FAERS Safety Report 25106975 (Version 2)
Quarter: 2025Q2

REPORT INFORMATION
  Report Type: Spontaneous
  Country: HU (occurrence: HU)
  Receive Date: 20250321
  Receipt Date: 20250407
  Transmission Date: 20250717
  Serious: Yes (Other)
  Sender: ABBVIE
  Company Number: HU-RICHTER-2025-GR-002905

PATIENT
  Sex: Male

DRUGS (2)
  1. CARIPRAZINE [Suspect]
     Active Substance: CARIPRAZINE
     Indication: Product used for unknown indication
     Route: 048
  2. CARIPRAZINE [Suspect]
     Active Substance: CARIPRAZINE
     Indication: Product used for unknown indication
     Route: 048

REACTIONS (7)
  - Hallucination [Unknown]
  - Weight increased [Unknown]
  - Confusional state [Unknown]
  - Disturbance in attention [Unknown]
  - Eating disorder [Unknown]
  - Vertigo [Unknown]
  - Hypersomnia [Unknown]
